FAERS Safety Report 16382943 (Version 1)
Quarter: 2019Q2

REPORT INFORMATION
  Report Type: Spontaneous
  Country: BR (occurrence: BR)
  Receive Date: 20190603
  Receipt Date: 20190603
  Transmission Date: 20190711
  Serious: Yes (Life-Threatening, Hospitalization, Other)
  Sender: FDA-Public Use
  Company Number: PHHY2019BR115524

PATIENT
  Sex: Female
  Weight: 55 kg

DRUGS (1)
  1. CATAFLAM [Suspect]
     Active Substance: DICLOFENAC POTASSIUM
     Indication: OROPHARYNGEAL PAIN
     Dosage: 1 DF, BID
     Route: 048
     Dates: start: 2009, end: 2009

REACTIONS (8)
  - Food interaction [Recovered/Resolved]
  - Skin discolouration [Recovered/Resolved]
  - Speech disorder [Unknown]
  - Apparent death [Recovered/Resolved]
  - Hypersensitivity [Recovered/Resolved]
  - Dyspnoea [Recovered/Resolved]
  - Oropharyngeal discomfort [Unknown]
  - Laryngeal obstruction [Recovered/Resolved]

NARRATIVE: CASE EVENT DATE: 2009
